FAERS Safety Report 4717763-8 (Version None)
Quarter: 2005Q3

REPORT INFORMATION
  Report Type: 
  Country: None (occurrence: None)
  Receive Date: 20050718
  Receipt Date: 20050718
  Transmission Date: 20060218
  Serious: Yes (Death)
  Sender: FDA-Public Use
  Company Number: None

PATIENT
  Sex: Female
  Weight: 74 kg

DRUGS (2)
  1. DAUNORUBICIN HCL [Suspect]
     Indication: ACUTE MYELOID LEUKAEMIA
     Dosage: 90MG/M2/DAY IV DAYS 1-3
     Route: 042
     Dates: start: 20050331, end: 20050624
  2. CYTARABINE [Suspect]
     Dosage: 100MG/M2/DAY IV DAYS 1-7
     Route: 042
     Dates: start: 20050620, end: 20050624

REACTIONS (14)
  - BLOOD PRESSURE DECREASED [None]
  - CATHETER SITE RELATED REACTION [None]
  - DEPRESSED LEVEL OF CONSCIOUSNESS [None]
  - DYSPNOEA [None]
  - ECCHYMOSIS [None]
  - ERYTHEMA [None]
  - HAEMATEMESIS [None]
  - HAEMOPTYSIS [None]
  - HEART RATE INCREASED [None]
  - OXYGEN SATURATION DECREASED [None]
  - PLATELET COUNT DECREASED [None]
  - PYREXIA [None]
  - TENDERNESS [None]
  - TREATMENT NONCOMPLIANCE [None]
